FAERS Safety Report 17460842 (Version 2)
Quarter: 2021Q1

REPORT INFORMATION
  Report Type: Spontaneous
  Country: US (occurrence: US)
  Receive Date: 20200226
  Receipt Date: 20210122
  Transmission Date: 20210419
  Serious: Yes (Other)
  Sender: FDA-Public Use
  Company Number: US-SA-2020SA048862

PATIENT
  Age: 66 Year
  Sex: Female

DRUGS (6)
  1. KEVZARA [Suspect]
     Active Substance: SARILUMAB
     Dosage: 200 MG, QOW
     Route: 058
     Dates: start: 202012
  2. PROLIA [Suspect]
     Active Substance: DENOSUMAB
  3. PREDNISOLONE. [Concomitant]
     Active Substance: PREDNISOLONE
  4. ENBREL [Suspect]
     Active Substance: ETANERCEPT
  5. XELJANZ [Concomitant]
     Active Substance: TOFACITINIB CITRATE
     Dosage: 11 MG
  6. KEVZARA [Suspect]
     Active Substance: SARILUMAB
     Indication: RHEUMATOID ARTHRITIS
     Dosage: 200 MG, QOW
     Route: 058
     Dates: start: 20200218, end: 2020

REACTIONS (15)
  - Migraine [Unknown]
  - Oesophageal irritation [Unknown]
  - Pain in jaw [Unknown]
  - Arrhythmia [Unknown]
  - Gastrooesophageal reflux disease [Unknown]
  - Abdominal discomfort [Unknown]
  - Erythema [Recovering/Resolving]
  - Swelling [Unknown]
  - Oropharyngeal pain [Unknown]
  - Skin swelling [Recovering/Resolving]
  - Cardiac disorder [Unknown]
  - Limb discomfort [Unknown]
  - Apnoea [Unknown]
  - Toothache [Unknown]
  - Fatigue [Unknown]

NARRATIVE: CASE EVENT DATE: 202002
